FAERS Safety Report 25294909 (Version 1)
Quarter: 2025Q2

REPORT INFORMATION
  Report Type: Spontaneous
  Country: US (occurrence: US)
  Receive Date: 20250511
  Receipt Date: 20250511
  Transmission Date: 20250716
  Serious: No
  Sender: SANOFI AVENTIS
  Company Number: US-SA-2025SA128338

PATIENT
  Sex: Female

DRUGS (16)
  1. DUPIXENT [Suspect]
     Active Substance: DUPILUMAB
     Indication: Neurodermatitis
  2. ADDERALL [Concomitant]
     Active Substance: AMPHETAMINE ASPARTATE\AMPHETAMINE SULFATE\DEXTROAMPHETAMINE SACCHARATE\DEXTROAMPHETAMINE SULFATE
  3. CARBAMAZEPINE [Concomitant]
     Active Substance: CARBAMAZEPINE
  4. CLONAZEPAM [Concomitant]
     Active Substance: CLONAZEPAM
  5. DICYCLOMINE [Concomitant]
     Active Substance: DICYCLOMINE HYDROCHLORIDE
  6. EXCEDRIN MIGRAINE [Concomitant]
     Active Substance: ACETAMINOPHEN\ASPIRIN\CAFFEINE
  7. FARXIGA [Concomitant]
     Active Substance: DAPAGLIFLOZIN PROPANEDIOL
  8. IBUPROFEN [Concomitant]
     Active Substance: IBUPROFEN
  9. IMODIUM A-D [Concomitant]
     Active Substance: LOPERAMIDE HYDROCHLORIDE
  10. JANUMET XR [Concomitant]
     Active Substance: METFORMIN HYDROCHLORIDE\SITAGLIPTIN PHOSPHATE
  11. LISINOPRIL [Concomitant]
     Active Substance: LISINOPRIL
  12. MELATONIN [Concomitant]
     Active Substance: MELATONIN
  13. MONTELUKAST [Concomitant]
     Active Substance: MONTELUKAST
  14. OZEMPIC [Concomitant]
     Active Substance: SEMAGLUTIDE
  15. PANTOPRAZOLE [Concomitant]
     Active Substance: PANTOPRAZOLE
  16. QULIPTA [Concomitant]
     Active Substance: ATOGEPANT

REACTIONS (1)
  - Therapeutic response decreased [Unknown]
